FAERS Safety Report 10662673 (Version 1)
Quarter: 2014Q4

REPORT INFORMATION
  Report Type: Spontaneous
  Country: US (occurrence: None)
  Receive Date: 20141217
  Receipt Date: 20141217
  Transmission Date: 20150529
  Serious: No
  Sender: FDA-Public Use
  Company Number: None

PATIENT
  Age: 70 Year

DRUGS (9)
  1. SYNTHROID [Concomitant]
     Active Substance: LEVOTHYROXINE SODIUM
  2. LIPITOR [Concomitant]
     Active Substance: ATORVASTATIN CALCIUM
  3. NOVALOG [Concomitant]
  4. GABAPENTIN. [Suspect]
     Active Substance: GABAPENTIN
  5. DILTIASZEM IICI [Concomitant]
  6. LANTUS [Concomitant]
     Active Substance: INSULIN GLARGINE
  7. METFORMIN [Concomitant]
     Active Substance: METFORMIN HYDROCHLORIDE
  8. DIOVAN ICCT [Concomitant]
  9. DOMPERIDONE [Concomitant]
     Active Substance: DOMPERIDONE

REACTIONS (1)
  - Alopecia [None]

NARRATIVE: CASE EVENT DATE: 20141031
